FAERS Safety Report 17916040 (Version 1)
Quarter: 2020Q2

REPORT INFORMATION
  Report Type: Spontaneous
  Country: US (occurrence: US)
  Receive Date: 20200618
  Receipt Date: 20200618
  Transmission Date: 20200714
  Serious: Yes (Life-Threatening)
  Sender: FDA-Public Use
  Company Number: None

PATIENT
  Age: 65 Year
  Sex: Female

DRUGS (1)
  1. GENGRAF [Suspect]
     Active Substance: CYCLOSPORINE
     Indication: LIVER TRANSPLANT
     Dosage: 2 CAPS 3 CAPS :QAM - QPM ; PO?
     Route: 048
     Dates: start: 20160521

REACTIONS (3)
  - Fall [None]
  - Wrist fracture [None]
  - Therapy interrupted [None]

NARRATIVE: CASE EVENT DATE: 20200604
